FAERS Safety Report 15852580 (Version 4)
Quarter: 2022Q1

REPORT INFORMATION
  Report Type: Report from Study
  Country: US (occurrence: US)
  Receive Date: 20190122
  Receipt Date: 20220209
  Transmission Date: 20220423
  Serious: Yes (Hospitalization, Other)
  Sender: FDA-Public Use
  Company Number: US-SA-2019SA000248

PATIENT
  Age: 45 Year
  Sex: Female

DRUGS (1)
  1. ALEMTUZUMAB [Suspect]
     Active Substance: ALEMTUZUMAB
     Indication: Multiple sclerosis
     Dosage: 12 MG, QD
     Route: 041
     Dates: start: 20181217, end: 20181221

REACTIONS (18)
  - Sepsis [Recovered/Resolved]
  - Pneumonia respiratory syncytial viral [Recovered/Resolved]
  - Dyspnoea [Recovered/Resolved]
  - Pyrexia [Unknown]
  - Influenza like illness [Not Recovered/Not Resolved]
  - Wheezing [Not Recovered/Not Resolved]
  - Cough [Not Recovered/Not Resolved]
  - Nasopharyngitis [Not Recovered/Not Resolved]
  - Bronchitis [Recovered/Resolved]
  - Pain [Not Recovered/Not Resolved]
  - Asthma [Unknown]
  - Drug intolerance [Unknown]
  - Immunoglobulins decreased [Unknown]
  - Urticaria [Recovered/Resolved]
  - Nasopharyngitis [Unknown]
  - Road traffic accident [Not Recovered/Not Resolved]
  - Dehydration [Unknown]
  - Cough [Unknown]

NARRATIVE: CASE EVENT DATE: 20181201
